FAERS Safety Report 16413177 (Version 1)
Quarter: 2019Q2

REPORT INFORMATION
  Report Type: Other
  Country: CA (occurrence: CA)
  Receive Date: 20190611
  Receipt Date: 20190611
  Transmission Date: 20190711
  Serious: Yes (Death, Hospitalization, Other)
  Sender: FDA-Public Use
  Company Number: CA-ADIENNEP-2019AD000305

PATIENT
  Age: 4 Month
  Sex: Female

DRUGS (7)
  1. VINCRISTINE SULFATE. [Concomitant]
     Active Substance: VINCRISTINE SULFATE
  2. METHOTREXATE. [Concomitant]
     Active Substance: METHOTREXATE
  3. THIOTEPA. [Suspect]
     Active Substance: THIOTEPA
     Indication: ATYPICAL TERATOID/RHABDOID TUMOUR OF CNS
     Dosage: 10 MG/KG DAILY
     Route: 065
  4. CISPLATIN. [Concomitant]
     Active Substance: CISPLATIN
  5. CYCLOPHOSPHAMIDE. [Concomitant]
     Active Substance: CYCLOPHOSPHAMIDE
  6. ETOPOSIDE. [Concomitant]
     Active Substance: ETOPOSIDE
  7. CARBOPLATIN. [Suspect]
     Active Substance: CARBOPLATIN
     Indication: ATYPICAL TERATOID/RHABDOID TUMOUR OF CNS
     Dosage: 17 MG/KG DAILY
     Route: 065

REACTIONS (2)
  - Pulmonary vascular disorder [Fatal]
  - Pulmonary arterial hypertension [Fatal]
